FAERS Safety Report 22367720 (Version 3)
Quarter: 2023Q2

REPORT INFORMATION
  Report Type: Spontaneous
  Country: None (occurrence: GB)
  Receive Date: 20230525
  Receipt Date: 20230630
  Transmission Date: 20230721
  Serious: Yes (Other)
  Sender: FDA-Public Use
  Company Number: GB-Ascend Therapeutics US, LLC-2142004

PATIENT
  Age: 60 Year
  Sex: Female
  Weight: 49 kg

DRUGS (4)
  1. ESTROGEL [Suspect]
     Active Substance: ESTRADIOL
     Indication: Menopause
  2. ESTRADIOL [Suspect]
     Active Substance: ESTRADIOL
  3. ESTRADIOL [Suspect]
     Active Substance: ESTRADIOL
     Dates: start: 20230405, end: 20230426
  4. ESTRADIOL [Suspect]
     Active Substance: ESTRADIOL
     Dates: start: 2023

REACTIONS (6)
  - Blood oestrogen decreased [Recovered/Resolved]
  - Drug ineffective [None]
  - Intentional product use issue [None]
  - Product quality issue [None]
  - Malaise [Unknown]
  - Vaginal haemorrhage [Unknown]

NARRATIVE: CASE EVENT DATE: 20230101
